FAERS Safety Report 6014312-1 (Version None)
Quarter: 2008Q4

REPORT INFORMATION
  Report Type: 
  Country: None (occurrence: None)
  Receive Date: 20081219
  Receipt Date: 20080408
  Transmission Date: 20090506
  Serious: No
  Sender: FDA-Public Use
  Company Number: A0721617A

PATIENT
  Age: 61 Year
  Sex: Male

DRUGS (2)
  1. AVODART [Suspect]
     Indication: BENIGN PROSTATIC HYPERPLASIA
     Route: 048
     Dates: start: 20070801, end: 20071001
  2. LIPITOR [Concomitant]

REACTIONS (4)
  - BALANCE DISORDER [None]
  - DIZZINESS [None]
  - DRUG ADMINISTRATION ERROR [None]
  - VERTIGO [None]
